FAERS Safety Report 8339043-4 (Version None)
Quarter: 2012Q2

REPORT INFORMATION
  Report Type: 
  Country: None (occurrence: None)
  Receive Date: 20120507
  Receipt Date: 20120426
  Transmission Date: 20120825
  Serious: Yes (Other)
  Sender: FDA-Public Use
  Company Number: JP-VERTEX PHARMACEUTICALS INC.-AE-2012-006225

PATIENT
  Age: 60 Year
  Sex: Female

DRUGS (23)
  1. TOPSYM [Concomitant]
     Route: 061
     Dates: start: 20120308
  2. CLARITIN [Concomitant]
     Route: 048
     Dates: start: 20120315, end: 20120425
  3. NORVASC [Concomitant]
     Route: 048
     Dates: start: 20120329, end: 20120425
  4. REBETOL [Concomitant]
     Route: 048
     Dates: start: 20120405
  5. PEG-INTRON [Concomitant]
     Route: 058
     Dates: start: 20120405
  6. DOGMATYL [Concomitant]
     Route: 048
     Dates: start: 20120308, end: 20120314
  7. SELBEX [Concomitant]
     Route: 048
     Dates: start: 20120308, end: 20120425
  8. PREDNISOLONE [Concomitant]
     Route: 048
     Dates: start: 20120323, end: 20120329
  9. NERIPROCT SUPPOS. [Concomitant]
     Route: 054
     Dates: start: 20120329, end: 20120411
  10. DEPAS [Concomitant]
     Route: 048
     Dates: start: 20120329, end: 20120425
  11. PREDNISOLONE [Concomitant]
     Route: 048
     Dates: start: 20120312, end: 20120314
  12. PREDNISOLONE [Concomitant]
     Route: 048
     Dates: start: 20120329, end: 20120406
  13. ALLOPURINOL [Concomitant]
     Route: 048
     Dates: start: 20120314, end: 20120329
  14. PREDNISOLONE [Concomitant]
     Route: 048
     Dates: start: 20120406, end: 20120425
  15. REBETOL [Concomitant]
     Indication: HEPATITIS C
     Route: 048
     Dates: start: 20120308
  16. ZOLPIDEM [Concomitant]
     Route: 048
     Dates: start: 20120315, end: 20120425
  17. PEG-INTRON [Concomitant]
     Indication: HEPATITIS C
     Route: 058
     Dates: start: 20120308, end: 20120329
  18. PREDNISOLONE [Concomitant]
     Route: 048
  19. ZYRTEC [Concomitant]
     Route: 048
     Dates: start: 20120308, end: 20120314
  20. LOXONIN [Concomitant]
     Route: 048
     Dates: start: 20120308
  21. PREDNISOLONE [Concomitant]
     Route: 048
     Dates: start: 20120315, end: 20120321
  22. TELAVIC (TELAPREVIR) [Suspect]
     Indication: HEPATITIS C
     Route: 048
     Dates: start: 20120308
  23. PREDNISOLONE [Concomitant]
     Route: 048
     Dates: start: 20120311

REACTIONS (1)
  - MANIA [None]
